FAERS Safety Report 9468590 (Version 1)
Quarter: 2013Q3

REPORT INFORMATION
  Report Type: Spontaneous
  Country: US (occurrence: US)
  Receive Date: 20130821
  Receipt Date: 20130821
  Transmission Date: 20140515
  Serious: Yes (Other)
  Sender: FDA-Public Use
  Company Number: US-ASTRAZENECA-2013SE63108

PATIENT
  Age: 19 Year
  Sex: Female
  Weight: 66.7 kg

DRUGS (25)
  1. SEROQUEL XR [Suspect]
     Indication: BIPOLAR DISORDER
     Route: 048
     Dates: start: 2009
  2. SEROQUEL XR [Suspect]
     Indication: SCHIZOPHRENIA
     Route: 048
     Dates: start: 2009
  3. SEROQUEL XR [Suspect]
     Indication: SLEEP DISORDER
     Route: 048
     Dates: start: 2009
  4. SEROQUEL XR [Suspect]
     Indication: HALLUCINATION
     Route: 048
     Dates: start: 2009
  5. SEROQUEL XR [Suspect]
     Indication: BIPOLAR I DISORDER
     Route: 048
     Dates: start: 2009
  6. SEROQUEL XR [Suspect]
     Indication: BIPOLAR DISORDER
     Route: 048
     Dates: start: 2009
  7. SEROQUEL XR [Suspect]
     Indication: SCHIZOPHRENIA
     Route: 048
     Dates: start: 2009
  8. SEROQUEL XR [Suspect]
     Indication: SLEEP DISORDER
     Route: 048
     Dates: start: 2009
  9. SEROQUEL XR [Suspect]
     Indication: HALLUCINATION
     Route: 048
     Dates: start: 2009
  10. SEROQUEL XR [Suspect]
     Indication: BIPOLAR I DISORDER
     Route: 048
     Dates: start: 2009
  11. SEROQUEL XR [Suspect]
     Indication: BIPOLAR DISORDER
     Route: 048
     Dates: start: 2013
  12. SEROQUEL XR [Suspect]
     Indication: SCHIZOPHRENIA
     Route: 048
     Dates: start: 2013
  13. SEROQUEL XR [Suspect]
     Indication: SLEEP DISORDER
     Route: 048
     Dates: start: 2013
  14. SEROQUEL XR [Suspect]
     Indication: HALLUCINATION
     Route: 048
     Dates: start: 2013
  15. SEROQUEL XR [Suspect]
     Indication: BIPOLAR I DISORDER
     Route: 048
     Dates: start: 2013
  16. SEROQUEL XR [Suspect]
     Indication: BIPOLAR DISORDER
     Dosage: CUTTING DOSE BY TAKING 200MG PILLS.
     Route: 048
  17. SEROQUEL XR [Suspect]
     Indication: SCHIZOPHRENIA
     Dosage: CUTTING DOSE BY TAKING 200MG PILLS.
     Route: 048
  18. SEROQUEL XR [Suspect]
     Indication: SLEEP DISORDER
     Dosage: CUTTING DOSE BY TAKING 200MG PILLS.
     Route: 048
  19. SEROQUEL XR [Suspect]
     Indication: HALLUCINATION
     Dosage: CUTTING DOSE BY TAKING 200MG PILLS.
     Route: 048
  20. SEROQUEL XR [Suspect]
     Indication: BIPOLAR I DISORDER
     Dosage: CUTTING DOSE BY TAKING 200MG PILLS.
     Route: 048
  21. PAXIL [Concomitant]
  22. STOOL SOFTENERS [Concomitant]
     Indication: HAEMORRHOIDS
  23. VITAMIN [Concomitant]
  24. FIBER [Concomitant]
     Indication: HAEMORRHOIDS
  25. BIRTH CONTROL [Concomitant]

REACTIONS (19)
  - Breast discharge [Unknown]
  - Hypoaesthesia [Unknown]
  - Hypoaesthesia [Unknown]
  - Feeling abnormal [Unknown]
  - Hallucination, visual [Unknown]
  - Calcinosis [Unknown]
  - Fibrocystic breast disease [Unknown]
  - Memory impairment [Unknown]
  - Fibromyalgia [Unknown]
  - Pain [Unknown]
  - Haemorrhoids [Unknown]
  - Judgement impaired [Unknown]
  - Somnolence [Unknown]
  - Weight increased [Unknown]
  - Irritability [Unknown]
  - Therapeutic response unexpected [Unknown]
  - Off label use [Unknown]
  - Intentional drug misuse [Unknown]
  - Drug dose omission [Unknown]
